FAERS Safety Report 5079104-9 (Version None)
Quarter: 2006Q3

REPORT INFORMATION
  Report Type: 
  Country: None (occurrence: None)
  Receive Date: 20060720
  Receipt Date: 20050712
  Transmission Date: 20061208
  Serious: Yes (Other)
  Sender: FDA-Public Use
  Company Number: 2005075351

PATIENT
  Sex: Male

DRUGS (5)
  1. CELEBREX [Suspect]
     Indication: ARTHRALGIA
     Dosage: ORAL
     Route: 048
     Dates: start: 20010101
  2. BEXTRA [Suspect]
     Indication: ILL-DEFINED DISORDER
  3. ZOLOFT [Concomitant]
  4. XALATAN [Concomitant]
  5. ZYLOPRIM [Concomitant]

REACTIONS (5)
  - ABDOMINAL PAIN UPPER [None]
  - FALL [None]
  - PAIN [None]
  - RIB FRACTURE [None]
  - SPINAL FRACTURE [None]
